FAERS Safety Report 14778687 (Version 1)
Quarter: 2018Q2

REPORT INFORMATION
  Report Type: Spontaneous
  Country: FR (occurrence: FR)
  Receive Date: 20180419
  Receipt Date: 20180419
  Transmission Date: 20180711
  Serious: Yes (Death, Hospitalization)
  Sender: FDA-Public Use
  Company Number: FR-BAYER-2018-072474

PATIENT
  Age: 71 Year
  Sex: Male

DRUGS (1)
  1. STIVARGA [Suspect]
     Active Substance: REGORAFENIB
     Indication: COLORECTAL CANCER METASTATIC
     Dosage: 40 MG, QID
     Dates: start: 201709

REACTIONS (6)
  - Hepatic failure [Fatal]
  - Dry skin [None]
  - Decreased appetite [None]
  - Ascites [None]
  - Localised oedema [None]
  - Lung disorder [None]

NARRATIVE: CASE EVENT DATE: 201712
